FAERS Safety Report 24987522 (Version 6)
Quarter: 2025Q4

REPORT INFORMATION
  Report Type: Spontaneous
  Country: JP (occurrence: JP)
  Receive Date: 20250219
  Receipt Date: 20251106
  Transmission Date: 20260117
  Serious: Yes (Hospitalization, Other)
  Sender: PFIZER
  Company Number: JP-ONO-2025JP002835

PATIENT
  Age: 66 Year
  Sex: Male
  Weight: 60.8 kg

DRUGS (9)
  1. BRAFTOVI [Suspect]
     Active Substance: ENCORAFENIB
     Indication: Thyroid cancer
     Dosage: 450 MG, DAILY (EVERY DAY)
     Route: 048
     Dates: start: 20250204, end: 20250205
  2. BRAFTOVI [Suspect]
     Active Substance: ENCORAFENIB
     Dosage: 300 MG, DAILY (EVERY DAY)
     Route: 048
     Dates: start: 20250328, end: 20250331
  3. MEKTOVI [Suspect]
     Active Substance: BINIMETINIB
     Indication: Thyroid cancer
     Dosage: 45 MG, 2X/DAY (EVERY 12 HOURS)
     Route: 048
     Dates: start: 20250204, end: 20250205
  4. MEKTOVI [Suspect]
     Active Substance: BINIMETINIB
     Dosage: 30 MG, 2X/DAY (EVERY 12 HOURS)
     Route: 048
     Dates: start: 20250328, end: 20250331
  5. TAFINLAR [Suspect]
     Active Substance: DABRAFENIB MESYLATE
     Indication: Thyroid cancer
     Dosage: UNK
     Route: 065
  6. MEKINIST [Suspect]
     Active Substance: TRAMETINIB DIMETHYL SULFOXIDE
     Indication: Thyroid cancer
     Dosage: UNK
     Route: 065
  7. PREGABALIN [Concomitant]
     Active Substance: PREGABALIN
     Dosage: 75 MG, 1X/DAY
     Route: 048
     Dates: start: 20230517
  8. ACETAMINOPHEN [Concomitant]
     Active Substance: ACETAMINOPHEN
     Dosage: 200 MG, 3X/DAY (EVERY 8 HOURS)
     Route: 048
     Dates: start: 20230302
  9. LEVOTHYROXINE SODIUM [Concomitant]
     Active Substance: LEVOTHYROXINE SODIUM
     Dosage: 150 UG, 1X/DAY
     Route: 048
     Dates: start: 20230302

REACTIONS (13)
  - Cardiac failure congestive [Recovering/Resolving]
  - Serous retinal detachment [Recovered/Resolved]
  - Amylase increased [Unknown]
  - Blood albumin decreased [Unknown]
  - Blood bilirubin decreased [Unknown]
  - Blood creatinine increased [Unknown]
  - Blood thyroid stimulating hormone decreased [Unknown]
  - Blood urea increased [Unknown]
  - Brain natriuretic peptide increased [Unknown]
  - C-reactive protein increased [Unknown]
  - Haemoglobin decreased [Unknown]
  - Platelet count decreased [Unknown]
  - Troponin I increased [Unknown]

NARRATIVE: CASE EVENT DATE: 20250205
